FAERS Safety Report 16249937 (Version 1)
Quarter: 2019Q2

REPORT INFORMATION
  Report Type: Spontaneous
  Country: US (occurrence: US)
  Receive Date: 20190429
  Receipt Date: 20190429
  Transmission Date: 20190711
  Serious: Yes (Life-Threatening, Hospitalization, Other)
  Sender: FDA-Public Use
  Company Number: US-DRREDDYS-USA/USA/19/0109827

PATIENT
  Age: 61 Year
  Sex: Female

DRUGS (1)
  1. SUMATRIPTAN SUCCINATE TABLETS [Suspect]
     Active Substance: SUMATRIPTAN SUCCINATE
     Indication: MIGRAINE

REACTIONS (2)
  - Cardiac arrest [Recovered/Resolved]
  - Arteriospasm coronary [Recovered/Resolved]
